FAERS Safety Report 7231219-2 (Version None)
Quarter: 2011Q1

REPORT INFORMATION
  Report Type: 
  Country: None (occurrence: None)
  Receive Date: 20110118
  Receipt Date: 20110114
  Transmission Date: 20110831
  Serious: Yes (Other)
  Sender: FDA-Public Use
  Company Number: B0682871A

PATIENT
  Age: 62 Year
  Sex: Female

DRUGS (6)
  1. AUGMENTIN [Suspect]
     Dosage: 500MG THREE TIMES PER DAY
     Route: 048
     Dates: start: 20100901, end: 20100915
  2. LEVOTHROID [Concomitant]
  3. DAFLON [Concomitant]
  4. METFORMIN [Concomitant]
     Dosage: 1TAB PER DAY
  5. MANIDON [Concomitant]
  6. SECALIP [Concomitant]

REACTIONS (8)
  - VAGINAL LESION [None]
  - HEPATITIS [None]
  - VULVOVAGINAL PRURITUS [None]
  - DECREASED APPETITE [None]
  - ALANINE AMINOTRANSFERASE INCREASED [None]
  - FATIGUE [None]
  - WEIGHT DECREASED [None]
  - BLOOD IMMUNOGLOBULIN G INCREASED [None]
